FAERS Safety Report 8579865-8 (Version None)
Quarter: 2012Q3

REPORT INFORMATION
  Report Type: 
  Country: None (occurrence: None)
  Receive Date: 20120731
  Receipt Date: 20120731
  Transmission Date: 20120928
  Serious: Yes (Hospitalization)
  Sender: FDA-Public Use
  Company Number: None

PATIENT
  Sex: Male
  Weight: 89.9 kg

DRUGS (3)
  1. DAUNORUBICIN HCL [Suspect]
     Dosage: 318 MG
     Dates: end: 20120704
  2. ETOPOSIDE [Suspect]
     Dosage: 1060 MG
     Dates: end: 20120704
  3. CYTARABINE [Suspect]
     Dosage: 3886 MG
     Dates: end: 20120630

REACTIONS (12)
  - BLOOD UREA NITROGEN/CREATININE RATIO INCREASED [None]
  - BLOOD ALBUMIN DECREASED [None]
  - MITRAL VALVE INCOMPETENCE [None]
  - ACUTE RESPIRATORY FAILURE [None]
  - SUBARACHNOID HAEMORRHAGE [None]
  - CEREBRAL HAEMORRHAGE [None]
  - PULMONARY HYPERTENSION [None]
  - MENTAL STATUS CHANGES [None]
  - BLOOD UREA INCREASED [None]
  - BLOOD CREATININE INCREASED [None]
  - BLOOD BILIRUBIN INCREASED [None]
  - BODY TEMPERATURE INCREASED [None]
